FAERS Safety Report 17742786 (Version 1)
Quarter: 2020Q2

REPORT INFORMATION
  Report Type: Spontaneous
  Country: US (occurrence: US)
  Receive Date: 20200504
  Receipt Date: 20200504
  Transmission Date: 20200714
  Serious: Yes (Other)
  Sender: FDA-Public Use
  Company Number: NVSC2020US118018

PATIENT
  Age: 56 Year
  Sex: Male

DRUGS (2)
  1. CARBOPLATIN. [Suspect]
     Active Substance: CARBOPLATIN
     Indication: OESOPHAGEAL ADENOCARCINOMA
     Dosage: UNK
     Route: 065
  2. PACLITAXEL. [Suspect]
     Active Substance: PACLITAXEL
     Indication: OESOPHAGEAL ADENOCARCINOMA
     Dosage: UNK
     Route: 065

REACTIONS (8)
  - Metastases to bone [Unknown]
  - Nausea [Unknown]
  - Pain [Unknown]
  - Oesophagitis [Unknown]
  - Malignant neoplasm progression [Unknown]
  - Vomiting [Unknown]
  - Product use in unapproved indication [Unknown]
  - Oesophageal adenocarcinoma [Unknown]
